FAERS Safety Report 16402050 (Version 1)
Quarter: 2019Q2

REPORT INFORMATION
  Report Type: Spontaneous
  Country: CA (occurrence: CA)
  Receive Date: 20190607
  Receipt Date: 20190607
  Transmission Date: 20190711
  Serious: Yes (Other)
  Sender: FDA-Public Use
  Company Number: PHHY2019CA126059

PATIENT
  Age: 10 Year
  Sex: Male

DRUGS (9)
  1. CASPOFUNGIN [Concomitant]
     Active Substance: CASPOFUNGIN
     Indication: PROPHYLAXIS
     Route: 042
  2. PREDNISONE. [Suspect]
     Active Substance: PREDNISONE
     Indication: BURKITT^S LYMPHOMA STAGE III
     Dosage: 30 MG/M2, BID (10 DOSES ON DAYS 1, 2, 3, 4, 5 AND THEN TAPER OVER 3 DAYS)
     Route: 048
  3. METHOTREXATE. [Suspect]
     Active Substance: METHOTREXATE
     Indication: BURKITT^S LYMPHOMA STAGE III
     Dosage: 3000 MG/M2, UNK (OVER 3 HOURS ON DAY 1)
     Route: 042
  4. CYCLOPHOSPHAMIDE. [Suspect]
     Active Substance: CYCLOPHOSPHAMIDE
     Indication: BURKITT^S LYMPHOMA STAGE III
     Dosage: 250 MG/M2, Q12H (OVER 30 MINUTES Q12H ? 6 DOSES ON DAYS 2, 3, 4, )
     Route: 042
  5. VINCRISTINE [Suspect]
     Active Substance: VINCRISTINE
     Indication: BURKITT^S LYMPHOMA STAGE III
     Dosage: 2 MG/M2, UNK ((MAX 2MG) I.V. PUSH ON DAY 1)
     Route: 042
  6. DOXORUBICIN [Suspect]
     Active Substance: DOXORUBICIN
     Indication: BURKITT^S LYMPHOMA STAGE III
     Dosage: 60 MG/M2, UNK (OVER 15 MINUTES ON DAY 2)
     Route: 042
  7. LEUCOVORIN CALCIUM. [Suspect]
     Active Substance: LEUCOVORIN CALCIUM
     Indication: BURKITT^S LYMPHOMA STAGE III
     Dosage: 15 MG/M2, Q6H (START AT HOURS 24 AND CONTINUE, UNTIL MTX LEVEL ? 0.1 UMOL/L )
     Route: 042
  8. RITUXIMAB. [Suspect]
     Active Substance: RITUXIMAB
     Indication: BURKITT^S LYMPHOMA STAGE III
     Dosage: 375 MG/M2, UNK (ON DAY ?1 (=DAY 6 OF COP) AND DAY 1 )
     Route: 042
  9. LEVOFLOXACIN. [Concomitant]
     Active Substance: LEVOFLOXACIN
     Indication: PROPHYLAXIS
     Route: 048

REACTIONS (3)
  - Febrile neutropenia [Unknown]
  - Mucosal inflammation [Recovered/Resolved]
  - Hypotension [Unknown]
